FAERS Safety Report 21632213 (Version 1)
Quarter: 2022Q4

REPORT INFORMATION
  Report Type: Spontaneous
  Country: US (occurrence: None)
  Receive Date: 20221122
  Receipt Date: 20221122
  Transmission Date: 20230112
  Serious: Yes (Death, Hospitalization)
  Sender: FDA-Public Use
  Company Number: None

PATIENT
  Sex: Male
  Weight: 57.4 kg

DRUGS (6)
  1. CYTARABINE [Suspect]
     Active Substance: CYTARABINE
     Dates: end: 20221104
  2. DAUNORUBICIN [Suspect]
     Active Substance: DAUNORUBICIN
     Dates: end: 20221028
  3. METHOTREXATE [Suspect]
     Active Substance: METHOTREXATE
     Dates: end: 20221028
  4. ONCASPAR [Suspect]
     Active Substance: PEGASPARGASE
     Dates: end: 20221025
  5. PREDNISOLONE [Suspect]
     Active Substance: PREDNISOLONE
     Dates: end: 20221103
  6. VINCRISTINE SULFATE [Concomitant]
     Active Substance: VINCRISTINE SULFATE
     Dates: end: 20221104

REACTIONS (24)
  - Tumour lysis syndrome [None]
  - Leukaemic infiltration renal [None]
  - Hypertension [None]
  - Seizure [None]
  - Posterior reversible encephalopathy syndrome [None]
  - Pain in extremity [None]
  - Magnesium deficiency [None]
  - Fall [None]
  - Head injury [None]
  - Haematoma [None]
  - Central nervous system leukaemia [None]
  - Jaundice cholestatic [None]
  - Hepatitis [None]
  - Haemophagocytic lymphohistiocytosis [None]
  - Musculoskeletal stiffness [None]
  - Tremor [None]
  - Hyperglycaemia [None]
  - Brain oedema [None]
  - Muscle contracture [None]
  - Subdural haemorrhage [None]
  - Venous thrombosis [None]
  - Heart rate decreased [None]
  - Blood pressure decreased [None]
  - Cardio-respiratory arrest [None]

NARRATIVE: CASE EVENT DATE: 20221112
